FAERS Safety Report 21301716 (Version 2)
Quarter: 2022Q3

REPORT INFORMATION
  Report Type: Spontaneous
  Country: RU (occurrence: RU)
  Receive Date: 20220907
  Receipt Date: 20220921
  Transmission Date: 20221027
  Serious: No
  Sender: FDA-Public Use
  Company Number: RU-NOVARTISPH-NVSC2022RU199876

PATIENT
  Sex: Male

DRUGS (4)
  1. TRAMETINIB [Suspect]
     Active Substance: TRAMETINIB
     Indication: Erdheim-Chester disease
     Dosage: 1 MG, QD
     Route: 065
     Dates: start: 202009
  2. TRAMETINIB [Suspect]
     Active Substance: TRAMETINIB
     Dosage: UNK, DISCONTINUED FOR 1 WEEK
     Route: 065
  3. TRAMETINIB [Suspect]
     Active Substance: TRAMETINIB
     Dosage: 1 MG, QOD
     Route: 065
  4. TRAMETINIB [Suspect]
     Active Substance: TRAMETINIB
     Dosage: 1 MG, QD, 21 DAYS OF TRAMETINIB PLUS 7 DAYS BREAK IN THERAPY
     Route: 065
     Dates: start: 202012

REACTIONS (3)
  - Periorbital oedema [Recovered/Resolved]
  - Dermatitis acneiform [Recovered/Resolved]
  - Drug ineffective for unapproved indication [Unknown]
